FAERS Safety Report 21577586 (Version 1)
Quarter: 2022Q4

REPORT INFORMATION
  Report Type: Spontaneous
  Country: CN (occurrence: CN)
  Receive Date: 20221110
  Receipt Date: 20221110
  Transmission Date: 20230113
  Serious: Yes (Other)
  Sender: FDA-Public Use
  Company Number: CN-ELI_LILLY_AND_COMPANY-CN202211001307

PATIENT
  Age: 25 Year
  Sex: Male

DRUGS (8)
  1. OLANZAPINE [Interacting]
     Active Substance: OLANZAPINE
     Indication: Schizophrenia
     Dosage: 5 MG, DAILY
     Route: 065
     Dates: start: 20181010, end: 20181018
  2. OLANZAPINE [Interacting]
     Active Substance: OLANZAPINE
     Dosage: 20 MG, DAILY
     Route: 065
     Dates: start: 20181018, end: 20200705
  3. OLANZAPINE [Interacting]
     Active Substance: OLANZAPINE
     Dosage: 15 MG, DAILY
     Route: 065
     Dates: start: 20200705, end: 20200805
  4. OLANZAPINE [Interacting]
     Active Substance: OLANZAPINE
     Dosage: 10 MG, DAILY
     Route: 065
     Dates: start: 20200805, end: 20210820
  5. OLANZAPINE [Interacting]
     Active Substance: OLANZAPINE
     Dosage: 20 MG, DAILY
     Route: 065
     Dates: start: 20210820
  6. TRIHEXYPHENIDYL [Interacting]
     Active Substance: TRIHEXYPHENIDYL
     Indication: Oculogyric crisis
     Dosage: 4 MG, DAILY
     Route: 065
  7. ZIPRASIDONE [Interacting]
     Active Substance: ZIPRASIDONE
     Indication: Schizophrenia
     Dosage: 40 MG, DAILY
     Route: 065
     Dates: start: 20210723, end: 20210727
  8. ZIPRASIDONE [Interacting]
     Active Substance: ZIPRASIDONE
     Dosage: 40 MG, DAILY
     Route: 065
     Dates: start: 20210815, end: 20210818

REACTIONS (4)
  - Schizophrenia [Recovered/Resolved]
  - Drug interaction [Recovered/Resolved]
  - Dysphemia [Recovered/Resolved]
  - Oculogyric crisis [Recovered/Resolved]

NARRATIVE: CASE EVENT DATE: 20210701
